FAERS Safety Report 24206548 (Version 1)
Quarter: 2024Q3

REPORT INFORMATION
  Report Type: Spontaneous
  Country: CN (occurrence: CN)
  Receive Date: 20240813
  Receipt Date: 20240813
  Transmission Date: 20241017
  Serious: Yes (Other)
  Sender: ELI LILLY AND CO
  Company Number: CN-ELI_LILLY_AND_COMPANY-CN202408006778

PATIENT
  Age: 63 Year
  Sex: Female
  Weight: 42 kg

DRUGS (8)
  1. GEMCITABINE HYDROCHLORIDE [Suspect]
     Active Substance: GEMCITABINE HYDROCHLORIDE
     Indication: Pancreatic carcinoma
     Dosage: 1 G, CYCLICAL (D1)
     Route: 041
     Dates: start: 20240607
  2. GEMCITABINE HYDROCHLORIDE [Suspect]
     Active Substance: GEMCITABINE HYDROCHLORIDE
     Dosage: 1.2 G, CYCLICAL (D8)
     Route: 041
     Dates: start: 20240614
  3. GEMCITABINE HYDROCHLORIDE [Suspect]
     Active Substance: GEMCITABINE HYDROCHLORIDE
     Dosage: 1.2 G, CYCLICAL (D1, 10)
     Route: 041
     Dates: start: 20240629
  4. GEMCITABINE HYDROCHLORIDE [Suspect]
     Active Substance: GEMCITABINE HYDROCHLORIDE
     Dosage: 1 G, CYCLICAL (D1, 8)
     Route: 041
     Dates: start: 20240723, end: 20240723
  5. PACLITAXEL [Suspect]
     Active Substance: PACLITAXEL
     Indication: Pancreatic carcinoma
     Dosage: 150 MG, CYCLICAL (D1)
     Route: 041
     Dates: start: 20240607
  6. PACLITAXEL [Suspect]
     Active Substance: PACLITAXEL
     Dosage: 150 MG, CYCLICAL (D8)
     Route: 041
     Dates: start: 20240614
  7. PACLITAXEL [Suspect]
     Active Substance: PACLITAXEL
     Dosage: 150 MG, CYCLICAL (D1, 10)
     Route: 041
     Dates: start: 20240629
  8. PACLITAXEL [Suspect]
     Active Substance: PACLITAXEL
     Dosage: 150 MG, CYCLICAL (D1, 8)
     Route: 041
     Dates: start: 20240723

REACTIONS (1)
  - Myelosuppression [Recovering/Resolving]

NARRATIVE: CASE EVENT DATE: 20240725
